FAERS Safety Report 21258633 (Version 1)
Quarter: 2022Q3

REPORT INFORMATION
  Report Type: Spontaneous
  Country: US (occurrence: None)
  Receive Date: 20220826
  Receipt Date: 20220826
  Transmission Date: 20221027
  Serious: Yes (Death)
  Sender: FDA-Public Use
  Company Number: US-FARMAPROD-202208-1578

PATIENT
  Sex: Female
  Weight: 51.438 kg

DRUGS (15)
  1. OXERVATE [Suspect]
     Active Substance: CENEGERMIN-BKBJ
     Indication: Neurotrophic keratopathy
     Route: 047
     Dates: start: 20220808
  2. LUBRICATING EYE [Concomitant]
     Active Substance: MINERAL OIL\PETROLATUM
     Dosage: 0.3 %-0.4%
  3. FERROUS SULFATE [Concomitant]
     Active Substance: FERROUS SULFATE
     Dosage: 325(65) MG
  4. ASPIRIN [Concomitant]
     Active Substance: ASPIRIN
  5. ENOXAPARIN SODIUM [Concomitant]
     Active Substance: ENOXAPARIN SODIUM
     Dosage: 40MG/0.4ML SYRINGE
  6. LISINOPRIL [Concomitant]
     Active Substance: LISINOPRIL
  7. ACETAMINOPHEN [Concomitant]
     Active Substance: ACETAMINOPHEN
  8. NICOTINE TRANSDERMAL SYSTEM [Concomitant]
     Active Substance: NICOTINE
     Dosage: 14 MG/24 HOUR PATCH THREE DAYS FOR 24 HOURS
  9. MIRTAZAPINE [Concomitant]
     Active Substance: MIRTAZAPINE
  10. POTASSIUM CHLORIDE [Concomitant]
     Active Substance: POTASSIUM CHLORIDE
     Dosage: 20 MILIEQUIVALENT /15 ML LIQUID
  11. GLYCOPYRROLATE [Concomitant]
     Active Substance: GLYCOPYRROLATE
  12. METFORMIN HYDROCHLORIDE [Concomitant]
     Active Substance: METFORMIN HYDROCHLORIDE
  13. MAXITROL [Concomitant]
     Active Substance: DEXAMETHASONE\NEOMYCIN SULFATE\POLYMYXIN B SULFATE
     Dosage: 3.5-10K-.1 (GRAM)
  14. CAPECITABINE [Concomitant]
     Active Substance: CAPECITABINE
  15. XANAX [Concomitant]
     Active Substance: ALPRAZOLAM

REACTIONS (1)
  - Death [Fatal]
